FAERS Safety Report 7653199-8 (Version None)
Quarter: 2011Q3

REPORT INFORMATION
  Report Type: 
  Country: None (occurrence: None)
  Receive Date: 20110722
  Receipt Date: 20100907
  Transmission Date: 20111222
  Serious: Yes (Hospitalization)
  Sender: FDA-Public Use
  Company Number: UTC-001413

PATIENT
  Age: 53 Year
  Sex: Female
  Weight: 52 kg

DRUGS (13)
  1. ULCERLMIN (SUCRALFATE) (POWDER) [Concomitant]
  2. DIART (AZOSEMIDE) (TABLETS) [Concomitant]
  3. PREDNISOLONE [Suspect]
     Indication: SYSTEMIC LUPUS ERYTHEMATOSUS
     Dosage: 10 MG (5 MG,2 IN 1 D),ORAL
     Route: 048
     Dates: start: 20070316
  4. HYALEIN MINI (HYALURONATE SODIUM) (EYE DROPS) [Concomitant]
  5. OMEPRAL (OMEPRAZOLE) (TABLETS) [Concomitant]
  6. JUVELA (TOCOPHEROL) (TABLETS) [Concomitant]
  7. TRACLEER [Concomitant]
  8. LANIRAPID (METILDIGOXIN) (TABLETS) [Concomitant]
  9. REMODULIN [Suspect]
     Indication: PULMONARY ARTERIAL HYPERTENSION
     Dosage: 48.6576 UG/KG (0.03379 UG/KG,1 IN 1 MIN),INTRAVENOUS
     Route: 042
     Dates: start: 20091209
  10. ALDACTONE A (SPIRONOLACTONE) (TABLETS) [Concomitant]
  11. MYSLEE (ZOLPIDEM TARTRATE) (TABLETS) [Concomitant]
  12. ISODINE [Concomitant]
  13. REVATIO [Concomitant]

REACTIONS (1)
  - SEPSIS [None]
